FAERS Safety Report 17311401 (Version 1)
Quarter: 2020Q1

REPORT INFORMATION
  Report Type: Spontaneous
  Country: US (occurrence: US)
  Receive Date: 20200123
  Receipt Date: 20200123
  Transmission Date: 20200409
  Serious: No
  Sender: FDA-Public Use
  Company Number: US-ROCHE-2387616

PATIENT
  Sex: Female
  Weight: 54.48 kg

DRUGS (1)
  1. RITUXAN [Suspect]
     Active Substance: RITUXIMAB
     Indication: PEMPHIGUS
     Route: 042
     Dates: start: 201712, end: 2018

REACTIONS (3)
  - Intentional product use issue [Unknown]
  - Off label use [Unknown]
  - Pain [Recovered/Resolved]
